FAERS Safety Report 26095823 (Version 1)
Quarter: 2025Q4

REPORT INFORMATION
  Report Type: Report from Study
  Country: EU (occurrence: EU)
  Receive Date: 20251127
  Receipt Date: 20251127
  Transmission Date: 20260117
  Serious: Yes (Hospitalization)
  Sender: ABBVIE
  Company Number: EU-ABBVIE-6563331

PATIENT
  Age: 67 Year
  Sex: Male
  Weight: 80 kg

DRUGS (16)
  1. FOSCARBIDOPA\FOSLEVODOPA [Suspect]
     Active Substance: FOSCARBIDOPA\FOSLEVODOPA
     Indication: Parkinson^s disease
     Dosage: DURATION OF DAILY INFUSION 24 HR?LOADING DOSE UPON WAKING- SPECIFY FLD/FCD DOSE 0.6ML?BASE RATE0....
     Route: 058
     Dates: start: 20250515, end: 20251030
  2. FOSCARBIDOPA\FOSLEVODOPA [Suspect]
     Active Substance: FOSCARBIDOPA\FOSLEVODOPA
     Dosage: DURATION OF DAILY INFUSION 24HR?BASIC RATE 0.9 ML/H DURATION 16. HOURS MORNING, AFTERNOON?LOW ALT...
     Route: 058
     Dates: start: 20251030
  3. FOSCARBIDOPA\FOSLEVODOPA [Suspect]
     Active Substance: FOSCARBIDOPA\FOSLEVODOPA
     Dosage: LOADING DOSE AT TREATMENT INITIATION- SPECIFY FLD/FCD DOSE 0.6?DURATION OF DAILY INFUSION 24 HR?L...
     Route: 058
     Dates: start: 20241114
  4. FOSCARBIDOPA\FOSLEVODOPA [Suspect]
     Active Substance: FOSCARBIDOPA\FOSLEVODOPA
     Dosage: LOADING DOSE AT TREATMENT INITIATION- SPECIFY FLD/FCD DOSE 0.6ML?DURATION OF DAILY INFUSION 24 HR...
     Route: 058
     Dates: start: 20241119, end: 20241211
  5. FOSCARBIDOPA\FOSLEVODOPA [Suspect]
     Active Substance: FOSCARBIDOPA\FOSLEVODOPA
     Dosage: DURATION OF DAILY INFUSION 24 HR?LOADING DOSE UPON WAKING- SPECIFY FLD/FCD DOSE 0.6ML?BASE RATE0....
     Route: 058
     Dates: start: 20241211, end: 20250306
  6. FOSCARBIDOPA\FOSLEVODOPA [Suspect]
     Active Substance: FOSCARBIDOPA\FOSLEVODOPA
     Dosage: DURATION OF DAILY INFUSION 24 HR?LOADING DOSE UPON WAKING- SPECIFY FLD/FCD DOSE 0.6ML?BASIC FLOW ...
     Route: 058
     Dates: start: 20250306, end: 20250528
  7. LIPTRUZET [Concomitant]
     Active Substance: ATORVASTATIN CALCIUM\EZETIMIBE
     Indication: Product used for unknown indication
     Dates: start: 20250213
  8. QUVIVIQ [Concomitant]
     Active Substance: DARIDOREXANT
     Indication: Product used for unknown indication
     Dates: start: 20250528
  9. PRAMIPEXOLE [Concomitant]
     Active Substance: PRAMIPEXOLE
     Indication: Parkinson^s disease
     Dates: start: 20220708
  10. Mao-b [Concomitant]
     Indication: Parkinson^s disease
     Dates: end: 20241114
  11. STALEVO [Concomitant]
     Active Substance: CARBIDOPA\ENTACAPONE\LEVODOPA
     Indication: Parkinson^s disease
     Dates: end: 20241114
  12. APOMORPHINE [Concomitant]
     Active Substance: APOMORPHINE
     Indication: Parkinson^s disease
     Dates: start: 20230602, end: 20241114
  13. POLYETHYLENE GLYCOLS [Concomitant]
     Active Substance: POLYETHYLENE GLYCOLS
     Indication: Product used for unknown indication
  14. ASPIRIN\CLOPIDOGREL [Concomitant]
     Active Substance: ASPIRIN\CLOPIDOGREL
     Indication: Product used for unknown indication
     Dates: start: 20250213
  15. DAPAGLIFLOZIN [Concomitant]
     Active Substance: DAPAGLIFLOZIN
     Indication: Product used for unknown indication
     Dates: start: 20250213
  16. COLCHICINE [Concomitant]
     Active Substance: COLCHICINE
     Indication: Product used for unknown indication
     Dates: start: 20250213

REACTIONS (3)
  - Melaena [Recovered/Resolved]
  - Red blood cell count decreased [Recovered/Resolved]
  - Haemoglobin decreased [Recovered/Resolved]

NARRATIVE: CASE EVENT DATE: 20250626
